FAERS Safety Report 23133662 (Version 1)
Quarter: 2023Q4

REPORT INFORMATION
  Report Type: Spontaneous
  Country: US (occurrence: US)
  Receive Date: 20231101
  Receipt Date: 20231101
  Transmission Date: 20240110
  Serious: Yes (Other)
  Sender: FDA-Public Use
  Company Number: None

PATIENT
  Age: 52 Year
  Sex: Female
  Weight: 64 kg

DRUGS (5)
  1. LEVOFLOXACIN [Suspect]
     Active Substance: LEVOFLOXACIN
     Indication: Respiratory failure
     Dosage: 750 MG, ONCE PER DAY
  2. ENOXAPARIN [Concomitant]
     Active Substance: ENOXAPARIN
     Indication: Thrombosis prophylaxis
     Dosage: 40 MG, ONCE PER DAY
     Route: 058
  3. METRONIDAZOLE [Concomitant]
     Active Substance: METRONIDAZOLE
     Indication: Respiratory failure
     Dosage: 500 MG, 3 TIMES PER DAY
  4. CYCLOPHOSPHAMIDE [Concomitant]
     Active Substance: CYCLOPHOSPHAMIDE
     Indication: Product used for unknown indication
     Dosage: UNK,  UNK
  5. IMMUNOGLOBULINS [Concomitant]
     Indication: Product used for unknown indication
     Dosage: UNK,  UNK
     Route: 042

REACTIONS (1)
  - Seizure [Unknown]
